FAERS Safety Report 24420693 (Version 2)
Quarter: 2024Q4

REPORT INFORMATION
  Report Type: Spontaneous
  Country: US (occurrence: US)
  Receive Date: 20241010
  Receipt Date: 20241018
  Transmission Date: 20250115
  Serious: No
  Sender: ROCHE
  Company Number: US-ROCHE-3559966

PATIENT

DRUGS (1)
  1. CATHFLO ACTIVASE [Suspect]
     Active Substance: ALTEPLASE
     Indication: Product used for unknown indication
     Route: 065

REACTIONS (9)
  - Blood glucose decreased [Unknown]
  - Blood pressure decreased [Unknown]
  - Autonomic nervous system imbalance [Unknown]
  - Postural orthostatic tachycardia syndrome [Unknown]
  - Ehlers-Danlos syndrome [Unknown]
  - Autoimmune thyroiditis [Unknown]
  - Osteoporosis [Unknown]
  - Mental disorder [Unknown]
  - Osteoarthritis [Unknown]
